FAERS Safety Report 18207289 (Version 1)
Quarter: 2020Q3

REPORT INFORMATION
  Report Type: Spontaneous
  Country: US (occurrence: US)
  Receive Date: 20200827
  Receipt Date: 20200827
  Transmission Date: 20201103
  Serious: Yes (Hospitalization)
  Sender: FDA-Public Use
  Company Number: None

PATIENT
  Sex: Female

DRUGS (1)
  1. HUMIRA [Suspect]
     Active Substance: ADALIMUMAB
     Indication: ANKYLOSING SPONDYLITIS
     Dosage: OTHER FREQUENCY:EVERY 2 WEEKS;?
     Route: 058
     Dates: start: 20200811

REACTIONS (6)
  - Aortic arteriosclerosis [None]
  - Pancreatic disorder [None]
  - Pain [None]
  - Dizziness [None]
  - Muscle tightness [None]
  - Anxiety [None]
